FAERS Safety Report 13833073 (Version 1)
Quarter: 2017Q3

REPORT INFORMATION
  Report Type: Spontaneous
  Country: US (occurrence: US)
  Receive Date: 20170804
  Receipt Date: 20170804
  Transmission Date: 20171127
  Serious: Yes (Other)
  Sender: FDA-Public Use
  Company Number: US-PFIZER INC-2017335930

PATIENT
  Sex: Female

DRUGS (1)
  1. TIKOSYN [Suspect]
     Active Substance: DOFETILIDE
     Indication: ATRIAL FIBRILLATION
     Dosage: UNK, 2X/DAY
     Dates: start: 20170712

REACTIONS (9)
  - Swelling face [Unknown]
  - Eye swelling [Unknown]
  - Dizziness [Unknown]
  - Rash pruritic [Unknown]
  - Transient ischaemic attack [Unknown]
  - Loss of consciousness [Unknown]
  - Loss of consciousness [Unknown]
  - Rash erythematous [Not Recovered/Not Resolved]
  - Chest pain [Unknown]

NARRATIVE: CASE EVENT DATE: 201707
